FAERS Safety Report 8936423 (Version 2)
Quarter: 2013Q1

REPORT INFORMATION
  Report Type: Spontaneous
  Country: US (occurrence: US)
  Receive Date: 20121130
  Receipt Date: 20130117
  Transmission Date: 20140127
  Serious: No
  Sender: FDA-Public Use
  Company Number: US-BAYER-2012-125516

PATIENT
  Age: 33 Year
  Sex: Female

DRUGS (3)
  1. MIRENA [Suspect]
     Indication: CONTRACEPTION
     Dosage: 20 MCG/24HR, CONT
     Route: 015
     Dates: start: 20121105, end: 20121105
  2. MIRENA [Suspect]
     Indication: CONTRACEPTION
     Dosage: 20 MCG/24HR, CONT
     Route: 015
     Dates: start: 20121207, end: 20121207
  3. MIRENA [Suspect]
     Indication: CONTRACEPTION
     Dosage: 20 MCG/24HR, CONT
     Route: 015
     Dates: start: 20121207, end: 20121207

REACTIONS (9)
  - Device difficult to use [None]
  - Device difficult to use [None]
  - Post procedural discomfort [None]
  - Device difficult to use [None]
  - Device difficult to use [None]
  - Post procedural discomfort [None]
  - Device difficult to use [None]
  - Device difficult to use [None]
  - Post procedural discomfort [None]
